FAERS Safety Report 16760177 (Version 7)
Quarter: 2022Q2

REPORT INFORMATION
  Report Type: Spontaneous
  Country: US (occurrence: US)
  Receive Date: 20190830
  Receipt Date: 20220404
  Transmission Date: 20220721
  Serious: Yes (Other)
  Sender: FDA-Public Use
  Company Number: US-PFIZER INC-2019371928

PATIENT
  Age: 62 Year
  Sex: Female

DRUGS (4)
  1. LYRICA [Suspect]
     Active Substance: PREGABALIN
     Indication: Diabetic gastroparesis
     Dosage: 300 MG, 2X/DAY
     Dates: start: 2011
  2. LYRICA [Suspect]
     Active Substance: PREGABALIN
     Indication: Neuropathy peripheral
  3. LYRICA [Suspect]
     Active Substance: PREGABALIN
     Indication: Diabetic neuropathy
  4. INSULIN NOS [Concomitant]
     Active Substance: INSULIN NOS
     Dosage: UNK

REACTIONS (6)
  - Drug dependence [Unknown]
  - Weight decreased [Unknown]
  - Agitation [Unknown]
  - Illness [Unknown]
  - Vomiting [Unknown]
  - Nausea [Unknown]
